FAERS Safety Report 24441984 (Version 2)
Quarter: 2024Q4

REPORT INFORMATION
  Report Type: Spontaneous
  Country: DE (occurrence: DE)
  Receive Date: 20241016
  Receipt Date: 20241017
  Transmission Date: 20250115
  Serious: No
  Sender: AMGEN
  Company Number: DE-002147023-NVSC2024DE162685

PATIENT
  Sex: Female

DRUGS (1)
  1. AIMOVIG [Suspect]
     Active Substance: ERENUMAB-AOOE
     Indication: Product used for unknown indication
     Dosage: 70 MG, QMO
     Route: 058
     Dates: start: 202408

REACTIONS (8)
  - Migraine [Recovering/Resolving]
  - Application site coldness [Recovered/Resolved]
  - Asthenia [Recovering/Resolving]
  - Injection site paraesthesia [Recovering/Resolving]
  - Limb discomfort [Recovering/Resolving]
  - Pruritus [Unknown]
  - Skin burning sensation [Unknown]
  - Influenza like illness [Unknown]

NARRATIVE: CASE EVENT DATE: 20240901
